FAERS Safety Report 14264125 (Version 4)
Quarter: 2018Q1

REPORT INFORMATION
  Report Type: Spontaneous
  Country: JP (occurrence: JP)
  Receive Date: 20171208
  Receipt Date: 20180213
  Transmission Date: 20180508
  Serious: Yes (Other)
  Sender: FDA-Public Use
  Company Number: JP-BAYER-2017-232634

PATIENT
  Age: 54 Year
  Sex: Female

DRUGS (1)
  1. STIVARGA [Suspect]
     Active Substance: REGORAFENIB
     Indication: HEPATOCELLULAR CARCINOMA
     Dosage: 160 MG, QD, 3 WEEKS ON,1 WEEK OFF
     Route: 048

REACTIONS (5)
  - Hepatic encephalopathy [None]
  - Blood thyroid stimulating hormone decreased [None]
  - Diarrhoea [None]
  - Dysphonia [None]
  - Malaise [None]
